FAERS Safety Report 9562115 (Version 1)
Quarter: 2013Q3

REPORT INFORMATION
  Report Type: Spontaneous
  Country: US (occurrence: US)
  Receive Date: 20130927
  Receipt Date: 20130927
  Transmission Date: 20140515
  Serious: Yes (Other)
  Sender: FDA-Public Use
  Company Number: US-PFIZER INC-2013275201

PATIENT
  Sex: Female

DRUGS (3)
  1. DIFLUCAN [Suspect]
     Dosage: UNK
  2. ALOXI [Suspect]
     Dosage: UNK
  3. TRISENOX [Suspect]
     Dosage: UNK

REACTIONS (1)
  - Electrocardiogram QT prolonged [Unknown]
